FAERS Safety Report 24612973 (Version 2)
Quarter: 2025Q3

REPORT INFORMATION
  Report Type: Report from Study
  Country: US (occurrence: US)
  Receive Date: 20241113
  Receipt Date: 20250809
  Transmission Date: 20251020
  Serious: Yes (Other)
  Sender: ALEXION PHARMACEUTICALS
  Company Number: US-AstraZeneca-CH-00739686A

PATIENT
  Sex: Male

DRUGS (2)
  1. DAPAGLIFLOZIN [Suspect]
     Active Substance: DAPAGLIFLOZIN
  2. OTEZLA [Concomitant]
     Active Substance: APREMILAST
     Route: 065

REACTIONS (4)
  - Thrombosis [Unknown]
  - Hypoaesthesia [Unknown]
  - Arthritis [Unknown]
  - Psoriasis [Unknown]
